FAERS Safety Report 21330390 (Version 2)
Quarter: 2023Q1

REPORT INFORMATION
  Report Type: Spontaneous
  Country: US (occurrence: US)
  Receive Date: 20220913
  Receipt Date: 20230310
  Transmission Date: 20230417
  Serious: Yes (Other)
  Sender: FDA-Public Use
  Company Number: US-PFIZER INC-202201151128

PATIENT
  Age: 57 Year
  Sex: Female

DRUGS (1)
  1. XELJANZ XR [Suspect]
     Active Substance: TOFACITINIB CITRATE
     Indication: Psoriatic arthropathy
     Dosage: 11 MG, 1X/DAY
     Route: 048
     Dates: start: 20210216, end: 20210824

REACTIONS (7)
  - Atrial fibrillation [Unknown]
  - Arrhythmia [Unknown]
  - Coronary artery stenosis [Unknown]
  - Sinus arrhythmia [Unknown]
  - Headache [Unknown]
  - Bundle branch block left [Unknown]
  - Obesity [Unknown]

NARRATIVE: CASE EVENT DATE: 20210101
